FAERS Safety Report 9528821 (Version 1)
Quarter: 2013Q1

REPORT INFORMATION
  Report Type: Spontaneous
  Country: US (occurrence: None)
  Receive Date: 20130322
  Receipt Date: 20130322
  Transmission Date: 20140127
  Serious: Yes (Hospitalization)
  Sender: FDA-Public Use
  Company Number: PHEH2012US018166

PATIENT
  Age: 12 Year
  Sex: Male

DRUGS (9)
  1. NEORAL (CICLOSPORIN) [Suspect]
     Indication: HEART TRANSPLANT
     Dates: start: 20110926
  2. AMLODIPINE [Concomitant]
  3. CELLCEPT (MYCOPHENOLATE MOFETIL) TABLET [Concomitant]
  4. LIPITOR (ATORVASTATIN CALCIUM) [Concomitant]
  5. LASIX (FUROSEMIDE) [Concomitant]
  6. MAGNESIUM [Concomitant]
  7. PREDNISONE [Concomitant]
  8. ZANTAC (RANITIDINE HYDROCHLORIDE) [Concomitant]
  9. BACTRIM [Concomitant]

REACTIONS (2)
  - Heart transplant rejection [None]
  - Diabetes mellitus [None]
